FAERS Safety Report 9048793 (Version 1)
Quarter: 2013Q1

REPORT INFORMATION
  Report Type: Spontaneous
  Country: US (occurrence: None)
  Receive Date: 20130130
  Receipt Date: 20130130
  Transmission Date: 20140127
  Serious: Yes (Hospitalization)
  Sender: FDA-Public Use
  Company Number: None

PATIENT
  Age: 40 Year
  Sex: Male

DRUGS (1)
  1. XOLAIR 150 MG GENENTECH [Suspect]
     Indication: ASTHMA
     Dates: start: 20121228, end: 201301

REACTIONS (7)
  - Urticaria [None]
  - Dyspnoea [None]
  - Drug effect decreased [None]
  - Drug hypersensitivity [None]
  - Rash generalised [None]
  - Haematochezia [None]
  - Anxiety [None]
